FAERS Safety Report 12780575 (Version 2)
Quarter: 2016Q3

REPORT INFORMATION
  Report Type: Spontaneous
  Country: US (occurrence: US)
  Receive Date: 20160926
  Receipt Date: 20160929
  Transmission Date: 20161109
  Serious: Yes (Other)
  Sender: FDA-Public Use
  Company Number: US-PFIZER INC-2016446945

PATIENT
  Age: 69 Year
  Sex: Female
  Weight: 42.18 kg

DRUGS (17)
  1. XELJANZ [Suspect]
     Active Substance: TOFACITINIB CITRATE
     Indication: RHEUMATOID ARTHRITIS
     Dosage: 5 MG, 2X/DAY, (ROUND PILL)
     Route: 048
     Dates: start: 2014
  2. DIAZEPAM. [Concomitant]
     Active Substance: DIAZEPAM
     Indication: ANXIETY
     Dosage: 10 MG, DAILY [5 MG, 2 DAILY]
  3. DICYCLOMINE [Concomitant]
     Active Substance: DICYCLOMINE HYDROCHLORIDE
     Indication: IRRITABLE BOWEL SYNDROME
     Dosage: 20 MG, DAILY [10 MG, TWO DAILY]
     Route: 048
  4. VITAMIN D3 [Concomitant]
     Active Substance: CHOLECALCIFEROL
     Indication: VITAMIN D DEFICIENCY
     Dosage: 20000 IU, DAILY [10000 UNITS, TWO DAILY]
  5. VITAMIN B12 [Concomitant]
     Active Substance: CYANOCOBALAMIN
     Indication: BLOOD DISORDER
     Dosage: UNK [100 MICROMILLIGRAMS]
  6. THIORIDAZINE [Concomitant]
     Active Substance: THIORIDAZINE
     Indication: IRRITABLE BOWEL SYNDROME
     Dosage: 20 MG, DAILY [10 MG, TWO DAILY]
  7. ATENOLOL. [Concomitant]
     Active Substance: ATENOLOL
     Indication: MITRAL VALVE PROLAPSE
     Dosage: 100 MG, DAILY [50 MG, TWO DAILY]
  8. PANTOPRAZOLE SODIUM. [Concomitant]
     Active Substance: PANTOPRAZOLE SODIUM
     Indication: GASTROOESOPHAGEAL REFLUX DISEASE
     Dosage: 40 MG, DAILY
     Dates: start: 2012
  9. ALENDRONATE [Concomitant]
     Active Substance: ALENDRONATE SODIUM
     Indication: OSTEOPOROSIS
     Dosage: 70 MG, WEEKLY; (ONE WEEKLY)
     Dates: start: 201603
  10. ATROPINE SULFATE W/DIFENOXIN HYDROCHLORIDE [Concomitant]
     Active Substance: ATROPINE SULFATE\DIFENOXIN HYDROCHLORIDE
     Indication: IRRITABLE BOWEL SYNDROME
     Dosage: 5 MG, DAILY [2.5 MG, TWO DAILY]
  11. PROBIOTICS [Concomitant]
     Active Substance: PROBIOTICS NOS
     Indication: BLOOD DISORDER
  12. ARMOUR THYROID [Concomitant]
     Active Substance: THYROID, PORCINE
     Indication: HYPOTHYROIDISM
     Dosage: 60 MG, DAILY
     Dates: start: 201603
  13. PREDNISONE. [Concomitant]
     Active Substance: PREDNISONE
     Indication: RHEUMATOID ARTHRITIS
     Dosage: 5 MG, DAILY
     Dates: start: 2012
  14. CALCIUM D3 [Concomitant]
     Active Substance: CALCIUM\CHOLECALCIFEROL
     Dosage: 800 IU, DAILY
  15. OMEGA 3 [Concomitant]
     Active Substance: OMEGA-3 FATTY ACIDS
     Dosage: 1000 MG, UNK
  16. PROBIOTICS [Concomitant]
     Active Substance: PROBIOTICS NOS
     Indication: LIVER DISORDER
     Dosage: UNK, DAILY [ONE DAILY]
  17. ESCITALOPRAM [Concomitant]
     Active Substance: ESCITALOPRAM OXALATE
     Indication: DEPRESSION
     Dosage: 10 MG, DAILY
     Dates: start: 2012

REACTIONS (2)
  - Limb injury [Not Recovered/Not Resolved]
  - Pelvic fracture [Not Recovered/Not Resolved]

NARRATIVE: CASE EVENT DATE: 20160801
